FAERS Safety Report 25932386 (Version 1)
Quarter: 2025Q4

REPORT INFORMATION
  Report Type: Spontaneous
  Country: AU (occurrence: AU)
  Receive Date: 20251016
  Receipt Date: 20251016
  Transmission Date: 20260118
  Serious: Yes (Other)
  Sender: ALKEM
  Company Number: None

PATIENT
  Sex: Male

DRUGS (6)
  1. LINEZOLID [Suspect]
     Active Substance: LINEZOLID
     Indication: Product used for unknown indication
     Dosage: UNK
     Route: 065
  2. BEDAQUILINE [Concomitant]
     Active Substance: BEDAQUILINE
     Indication: Product used for unknown indication
     Dosage: UNK
     Route: 065
  3. CLOFAZIMINE [Concomitant]
     Active Substance: CLOFAZIMINE
     Indication: Product used for unknown indication
     Dosage: UNK
     Route: 065
  4. CYCLOSERINE [Concomitant]
     Active Substance: CYCLOSERINE
     Indication: Product used for unknown indication
     Dosage: UNK
     Route: 065
  5. DELAMANID [Concomitant]
     Active Substance: DELAMANID
     Indication: Product used for unknown indication
     Dosage: UNK
     Route: 065
  6. PROTIONAMIDE [Concomitant]
     Active Substance: PROTIONAMIDE
     Indication: Product used for unknown indication
     Dosage: UNK
     Route: 065

REACTIONS (3)
  - Deafness neurosensory [Unknown]
  - Neutropenia [Unknown]
  - Off label use [Unknown]
